FAERS Safety Report 5351902-3 (Version None)
Quarter: 2007Q2

REPORT INFORMATION
  Report Type: 
  Country: None (occurrence: None)
  Receive Date: 20070609
  Receipt Date: 20070529
  Transmission Date: 20071010
  Serious: Yes (Congenital Anomaly)
  Sender: FDA-Public Use
  Company Number: TW-ABBOTT-07P-153-0370121-00

PATIENT
  Age: 1 Day

DRUGS (2)
  1. VALPROIC ACID [Suspect]
     Indication: DRUG EXPOSURE DURING PREGNANCY
     Route: 064
  2. PHENYTOIN [Suspect]
     Indication: DRUG EXPOSURE DURING PREGNANCY
     Route: 064

REACTIONS (9)
  - ARACHNODACTYLY [None]
  - CONGENITAL FOOT MALFORMATION [None]
  - CONGENITAL HAND MALFORMATION [None]
  - CRANIOSYNOSTOSIS [None]
  - FOETAL ANTICONVULSANT SYNDROME [None]
  - MICROCEPHALY [None]
  - POLYDACTYLY [None]
  - SKULL MALFORMATION [None]
  - SYNDACTYLY [None]
